FAERS Safety Report 4341462-8 (Version None)
Quarter: 2004Q2

REPORT INFORMATION
  Report Type: 
  Country: None (occurrence: None)
  Receive Date: 20040415
  Receipt Date: 20040326
  Transmission Date: 20050107
  Serious: Yes (Hospitalization)
  Sender: FDA-Public Use
  Company Number: USA040363178

PATIENT
  Age: 84 Year
  Sex: Female
  Weight: 64 kg

DRUGS (1)
  1. HUMULIN-HUMNA NPH INSULIN (RDNA) (HUMAN INSULIN (RD [Suspect]
     Indication: DIABETES MELLITUS
     Dosage: 27 U DAY
     Dates: start: 19810101

REACTIONS (3)
  - ARTHROPATHY [None]
  - MOBILITY DECREASED [None]
  - WALKING AID USER [None]
